FAERS Safety Report 4264385-1 (Version None)
Quarter: 2004Q1

REPORT INFORMATION
  Report Type: 
  Country: None (occurrence: None)
  Receive Date: 20040102
  Receipt Date: 20031222
  Transmission Date: 20041129
  Serious: Yes (Death)
  Sender: FDA-Public Use
  Company Number: APCDSS2003000449

PATIENT
  Age: 50 Year
  Sex: Male
  Weight: 48 kg

DRUGS (4)
  1. REMICADE [Suspect]
     Indication: CROHN'S DISEASE
     Dosage: 5 MG/KG, 1 IN 1 AS NECESSARY INTRAVENOUS DRIP
     Route: 041
     Dates: start: 20021204, end: 20021204
  2. PREDONIN (PREDNISOLONE) UNSPECIFIED [Concomitant]
  3. PENTASA [Concomitant]
  4. TOTAL PARENTERAL NUTRITION (POLYVINYL ALCOHOL) [Concomitant]

REACTIONS (2)
  - DRUG INEFFECTIVE [None]
  - SEPTIC SHOCK [None]
